FAERS Safety Report 8949792 (Version 1)
Quarter: 2012Q4

REPORT INFORMATION
  Report Type: 
  Country: BD (occurrence: BD)
  Receive Date: 20121206
  Receipt Date: 20121206
  Transmission Date: 20130627
  Serious: Yes (Death, Hospitalization, Other)
  Sender: FDA-Public Use
  Company Number: PHHY2012BD112052

PATIENT
  Age: 75 Year
  Sex: Female

DRUGS (7)
  1. EXELON PATCH [Suspect]
     Indication: DEMENTIA
     Dosage: 4.6 mg, daily
     Route: 062
     Dates: start: 20120711
  2. RAMIPRIL [Concomitant]
     Dosage: 5 mg, UNK
     Route: 048
     Dates: start: 20120711
  3. CLOPIDOGREL [Concomitant]
     Dosage: UNK UKN, UNK
     Route: 048
  4. AMLODIPINE W/ATENOLOL [Concomitant]
     Route: 048
  5. CLONAZEPAM [Concomitant]
     Dosage: 0.5 mg, UNK
     Route: 048
  6. MEMANTINE [Concomitant]
     Dosage: 5 mg, UNK
     Route: 048
  7. CARBOPLEX [Concomitant]

REACTIONS (5)
  - General physical health deterioration [Fatal]
  - Pollakiuria [Unknown]
  - Disorientation [Unknown]
  - Logorrhoea [Unknown]
  - Asthenia [Unknown]
